FAERS Safety Report 10992151 (Version 1)
Quarter: 2015Q2

REPORT INFORMATION
  Report Type: Spontaneous
  Country: US (occurrence: US)
  Receive Date: 20150406
  Receipt Date: 20150406
  Transmission Date: 20150821
  Serious: Yes (Life-Threatening, Hospitalization)
  Sender: FDA-Public Use
  Company Number: US-IMPAX LABORATORIES, INC-2015-IPXL-00355

PATIENT
  Age: 79 Year
  Sex: Male

DRUGS (3)
  1. DIGOXIN. [Suspect]
     Active Substance: DIGOXIN
     Indication: ATRIAL FIBRILLATION
     Dosage: 125 ?G, DAILY
     Route: 048
  2. DIGOXIN. [Suspect]
     Active Substance: DIGOXIN
     Dosage: 5 ML, DAILY
     Route: 065
  3. DIGOXIN. [Suspect]
     Active Substance: DIGOXIN
     Dosage: 2.5 ML, DAILY
     Route: 065

REACTIONS (8)
  - Nausea [Recovered/Resolved]
  - Visual impairment [Recovered/Resolved]
  - Nodal rhythm [Unknown]
  - Incorrect dose administered [Unknown]
  - Renal failure [Unknown]
  - Bradycardia [Recovering/Resolving]
  - Vomiting [Unknown]
  - Toxicity to various agents [Unknown]
